FAERS Safety Report 12329222 (Version 2)
Quarter: 2016Q3

REPORT INFORMATION
  Report Type: Report from Study
  Country: US (occurrence: US)
  Receive Date: 20160503
  Receipt Date: 20160708
  Transmission Date: 20161109
  Serious: Yes (Other)
  Sender: FDA-Public Use
  Company Number: US-GILEAD-2016-0211489

PATIENT
  Age: 66 Year
  Sex: Female

DRUGS (2)
  1. IDELALISIB [Suspect]
     Active Substance: IDELALISIB
     Indication: CHRONIC LYMPHOCYTIC LEUKAEMIA
     Dosage: 100 MG, BID (STARTED ABOUT 8 MONTHS AGO)
     Route: 048
  2. RITUXAN [Concomitant]
     Active Substance: RITUXIMAB
     Dosage: 4 DOSES OVER 2 MONTHS

REACTIONS (2)
  - Back pain [Recovering/Resolving]
  - White blood cell count increased [Unknown]
